FAERS Safety Report 15750655 (Version 4)
Quarter: 2019Q2

REPORT INFORMATION
  Report Type: Spontaneous
  Country: US (occurrence: US)
  Receive Date: 20181221
  Receipt Date: 20190522
  Transmission Date: 20190711
  Serious: Yes (Other)
  Sender: FDA-Public Use
  Company Number: US-BAUSCH-BL-2018-035419

PATIENT
  Age: 47 Year
  Sex: Female

DRUGS (4)
  1. MOVIPREP [Suspect]
     Active Substance: ASCORBIC ACID\POLYETHYLENE GLYCOL 3350\POTASSIUM CHLORIDE\SODIUM ASCORBATE\SODIUM CHLORIDE\SODIUM SULFATE
     Indication: BOWEL PREPARATION
     Route: 048
  2. GOLYTELY [Suspect]
     Active Substance: POLYETHYLENE GLYCOL 3350\POTASSIUM CHLORIDE\SODIUM BICARBONATE\SODIUM CHLORIDE\SODIUM SULFATE ANHYDROUS
     Indication: BOWEL PREPARATION
     Route: 048
     Dates: start: 20131230
  3. VITAMIN B [Concomitant]
     Active Substance: VITAMIN B
     Indication: PRODUCT USED FOR UNKNOWN INDICATION
  4. FENOFIBRATE. [Suspect]
     Active Substance: FENOFIBRATE
     Indication: BLOOD CHOLESTEROL ABNORMAL
     Route: 065
     Dates: end: 20140513

REACTIONS (17)
  - Palpitations [Recovering/Resolving]
  - Hypertension [Not Recovered/Not Resolved]
  - Heart rate increased [Not Recovered/Not Resolved]
  - Feeling abnormal [Recovered/Resolved]
  - Vitreous floaters [Recovering/Resolving]
  - Tooth loss [Recovering/Resolving]
  - Cardiometabolic syndrome [Recovering/Resolving]
  - Angina pectoris [Recovering/Resolving]
  - Muscular weakness [Recovered/Resolved]
  - Angiopathy [Recovered/Resolved]
  - Facet joint syndrome [Recovering/Resolving]
  - Headache [Recovering/Resolving]
  - Inability to afford medication [Unknown]
  - Breast cyst [Recovering/Resolving]
  - Hypoaesthesia [Recovered/Resolved]
  - Spinal retrolisthesis [Recovering/Resolving]
  - Tinnitus [Recovering/Resolving]

NARRATIVE: CASE EVENT DATE: 2013
